FAERS Safety Report 4567517-0 (Version None)
Quarter: 2005Q1

REPORT INFORMATION
  Report Type: 
  Country: None (occurrence: None)
  Receive Date: 20050201
  Receipt Date: 20041008
  Transmission Date: 20050727
  Serious: Yes (Life-Threatening)
  Sender: FDA-Public Use
  Company Number: US-MERCK-0410USA01440

PATIENT
  Age: 44 Year
  Sex: Female
  Weight: 69 kg

DRUGS (3)
  1. VIOXX [Suspect]
     Indication: NECK PAIN
     Route: 048
     Dates: start: 20020501, end: 20040831
  2. FLEXERIL [Concomitant]
     Route: 065
  3. ZOLOFT [Concomitant]
     Route: 048
     Dates: start: 20020901

REACTIONS (2)
  - HEART RATE INCREASED [None]
  - PALPITATIONS [None]
